FAERS Safety Report 7773897 (Version 3)
Quarter: 2014Q1

REPORT INFORMATION
  Report Type: Spontaneous
  Country: FR (occurrence: FR)
  Receive Date: 20110125
  Receipt Date: 20140102
  Transmission Date: 20141002
  Serious: Yes (Hospitalization, Other)
  Sender: FDA-Public Use
  Company Number: FR-WATSON-2011-00823

PATIENT
  Age: 1 Month
  Sex: Female

DRUGS (3)
  1. SALBUTAMOL [Suspect]
     Indication: BRONCHIOLITIS
     Dosage: 1.5 ML, DAILY ON REQUEST
     Route: 055
     Dates: start: 20110111, end: 20110112
  2. DOLIPRANE [Concomitant]
     Indication: PRODUCT USED FOR UNKNOWN INDICATION
     Dosage: UNK ML, UNK
     Route: 048
     Dates: start: 20110111
  3. SOLU MEDROL [Concomitant]
     Indication: BRONCHIOLITIS
     Dosage: UNK
     Route: 042
     Dates: start: 20110111

REACTIONS (2)
  - Oxygen saturation decreased [Recovered/Resolved]
  - Respiratory disorder [Recovered/Resolved]
